FAERS Safety Report 16730946 (Version 1)
Quarter: 2019Q3

REPORT INFORMATION
  Report Type: Spontaneous
  Country: GT (occurrence: GT)
  Receive Date: 20190822
  Receipt Date: 20190822
  Transmission Date: 20191005
  Serious: Yes (Other)
  Sender: FDA-Public Use
  Company Number: GT-BAYER-2019-151721

PATIENT
  Age: 53 Year
  Sex: Female

DRUGS (1)
  1. NEXAVAR [Suspect]
     Active Substance: SORAFENIB
     Indication: PAPILLARY THYROID CANCER
     Dosage: 400 MG, QD

REACTIONS (3)
  - Eastern Cooperative Oncology Group performance status worsened [None]
  - Respiratory failure [Unknown]
  - Off label use [None]
